FAERS Safety Report 15469732 (Version 2)
Quarter: 2018Q4

REPORT INFORMATION
  Report Type: Spontaneous
  Country: US (occurrence: US)
  Receive Date: 20181005
  Receipt Date: 20181114
  Transmission Date: 20190205
  Serious: Yes (Other)
  Sender: FDA-Public Use
  Company Number: US-SA-2018SA271206

PATIENT
  Age: 66 Year
  Sex: Male
  Weight: 190 kg

DRUGS (4)
  1. LISINOPRIL. [Concomitant]
     Active Substance: LISINOPRIL
     Indication: BLOOD PRESSURE INCREASED
     Dosage: UNK UNK, QD
     Dates: start: 200702, end: 200712
  2. VERAPAMIL [Concomitant]
     Active Substance: VERAPAMIL HYDROCHLORIDE
     Indication: HYPERTENSION
     Dosage: 210 MG, QD
     Dates: start: 200806
  3. AMBIEN [Suspect]
     Active Substance: ZOLPIDEM TARTRATE
     Indication: INSOMNIA
     Dosage: 10 MG, HS
     Dates: start: 200803
  4. INDERAL [Concomitant]
     Active Substance: PROPRANOLOL HYDROCHLORIDE
     Indication: HYPERTENSION
     Dosage: 80 MG, QD
     Dates: start: 200806

REACTIONS (8)
  - Bladder cancer [Unknown]
  - Bladder discomfort [Unknown]
  - Urine output increased [Unknown]
  - Urinary retention [Unknown]
  - Dysuria [Unknown]
  - Feeling abnormal [Unknown]
  - Blood urine present [Unknown]
  - Dysplasia [Unknown]

NARRATIVE: CASE EVENT DATE: 201703
